FAERS Safety Report 8698860 (Version 2)
Quarter: 2013Q4

REPORT INFORMATION
  Report Type: Spontaneous
  Country: FR (occurrence: FR)
  Receive Date: 20120802
  Receipt Date: 20131031
  Transmission Date: 20140711
  Serious: Yes (Disabling)
  Sender: FDA-Public Use
  Company Number: FR-009507513-1207FRA008810

PATIENT
  Age: 41 Year
  Sex: Female

DRUGS (1)
  1. CELESTENE [Suspect]
     Indication: PRODUCT USED FOR UNKNOWN INDICATION
     Dosage: UNK
     Dates: start: 200903, end: 2009

REACTIONS (1)
  - Sickle cell anaemia with crisis [Not Recovered/Not Resolved]
